FAERS Safety Report 5078756-7 (Version None)
Quarter: 2006Q3

REPORT INFORMATION
  Report Type: 
  Country: None (occurrence: None)
  Receive Date: 20060814
  Receipt Date: 20060804
  Transmission Date: 20061208
  Serious: Yes (Hospitalization)
  Sender: FDA-Public Use
  Company Number: SE-JNJFOC-20060801290

PATIENT
  Age: 53 Year
  Sex: Female

DRUGS (13)
  1. REMICADE [Suspect]
     Indication: ALLERGIC GRANULOMATOUS ANGIITIS
     Route: 042
  2. VAGIFEM [Concomitant]
     Route: 067
  3. SERETIDE DISKUS FORTE [Concomitant]
     Route: 055
  4. NASONEX [Concomitant]
     Route: 045
  5. LYRICA [Concomitant]
     Route: 048
  6. CYCLOSPORINE [Concomitant]
     Route: 048
  7. METHOTREXATE [Concomitant]
     Route: 048
  8. FOLACIN [Concomitant]
     Route: 048
  9. CYKLOKAPRON [Concomitant]
     Route: 048
  10. PREDNISOLONE [Concomitant]
     Route: 048
  11. TROMBYL [Concomitant]
     Route: 048
  12. CALCICHEW D3 [Concomitant]
     Route: 048
  13. LOSEC [Concomitant]
     Route: 048

REACTIONS (3)
  - HAEMATEMESIS [None]
  - PYREXIA [None]
  - TRANSAMINASES INCREASED [None]
